FAERS Safety Report 4731588-9 (Version None)
Quarter: 2005Q3

REPORT INFORMATION
  Report Type: 
  Country: None (occurrence: None)
  Receive Date: 20050722
  Receipt Date: 20050426
  Transmission Date: 20060218
  Serious: Yes (Other)
  Sender: FDA-Public Use
  Company Number: USA-2005-0020000

PATIENT
  Age: 31 Year
  Sex: Female

DRUGS (7)
  1. PALLADONE [Suspect]
     Indication: PAIN
     Dosage: 16 MG, Q24H, ORAL
     Route: 048
     Dates: start: 20050425, end: 20050426
  2. PERCOCET [Suspect]
     Indication: PAIN
     Dosage: 0 MG, QID PRN
  3. PHENERGAN HCL [Concomitant]
  4. LEXAPRO [Concomitant]
  5. PEN-VEE K [Concomitant]
  6. PREDNISONE [Concomitant]
  7. PARAFON FORTE [Concomitant]

REACTIONS (8)
  - DRUG ABUSER [None]
  - DRUG INEFFECTIVE [None]
  - DRUG WITHDRAWAL SYNDROME [None]
  - NAUSEA [None]
  - STOMACH DISCOMFORT [None]
  - TACHYCARDIA [None]
  - TREMOR [None]
  - VOMITING [None]
